FAERS Safety Report 7184351-6 (Version None)
Quarter: 2010Q4

REPORT INFORMATION
  Report Type: 
  Country: None (occurrence: None)
  Receive Date: 20101222
  Receipt Date: 20100427
  Transmission Date: 20110411
  Serious: No
  Sender: FDA-Public Use
  Company Number: US-PFIZER INC-2010053916

PATIENT
  Sex: Female
  Weight: 70.3 kg

DRUGS (1)
  1. DIFLUCAN [Suspect]
     Indication: FUNGAL INFECTION
     Dosage: UNK
     Route: 048
     Dates: end: 20100426

REACTIONS (1)
  - LIP SWELLING [None]
